FAERS Safety Report 17483240 (Version 3)
Quarter: 2020Q1

REPORT INFORMATION
  Report Type: Spontaneous
  Country: CN (occurrence: CN)
  Receive Date: 20200302
  Receipt Date: 20200319
  Transmission Date: 20200409
  Serious: Yes (Death, Hospitalization, Other)
  Sender: FDA-Public Use
  Company Number: CN-ASTRAZENECA-2020SE29900

PATIENT
  Age: 47 Year

DRUGS (1)
  1. IMFINZI [Suspect]
     Active Substance: DURVALUMAB
     Route: 042
     Dates: start: 20200115

REACTIONS (7)
  - Muscular weakness [Not Recovered/Not Resolved]
  - Immune-mediated myocarditis [Unknown]
  - Death [Fatal]
  - Dyspnoea [Not Recovered/Not Resolved]
  - Multiple organ dysfunction syndrome [Unknown]
  - Immune-mediated adverse reaction [Unknown]
  - Productive cough [Unknown]
